FAERS Safety Report 4644860-8 (Version None)
Quarter: 2005Q2

REPORT INFORMATION
  Report Type: 
  Country: None (occurrence: None)
  Receive Date: 20050422
  Receipt Date: 20050408
  Transmission Date: 20051028
  Serious: Yes (Hospitalization)
  Sender: FDA-Public Use
  Company Number: KII-2005-0016009

PATIENT
  Age: 11 Month
  Sex: Female

DRUGS (1)
  1. MORPHINE SULFATE [Suspect]
     Indication: DRUG USE FOR UNKNOWN INDICATION
     Dosage: ORAL
     Route: 048

REACTIONS (12)
  - ACCIDENTAL EXPOSURE [None]
  - ACIDOSIS [None]
  - BLOOD PRESSURE INCREASED [None]
  - COMA [None]
  - CYANOSIS [None]
  - DRUG SCREEN POSITIVE [None]
  - HEART RATE INCREASED [None]
  - LETHARGY [None]
  - MIOSIS [None]
  - RESPIRATORY DEPRESSION [None]
  - STRIDOR [None]
  - WHITE BLOOD CELL COUNT DECREASED [None]
